FAERS Safety Report 21725777 (Version 1)
Quarter: 2022Q4

REPORT INFORMATION
  Report Type: Report from Study
  Country: US (occurrence: US)
  Receive Date: 20221214
  Receipt Date: 20221214
  Transmission Date: 20230113
  Serious: Yes (Death, Other)
  Sender: FDA-Public Use
  Company Number: US-SUN PHARMACEUTICAL INDUSTRIES LTD-2022R1-368513

PATIENT
  Age: 56 Year
  Sex: Female

DRUGS (1)
  1. LITHIUM [Suspect]
     Active Substance: LITHIUM
     Indication: Product used for unknown indication
     Route: 065

REACTIONS (7)
  - Toxicity to various agents [Fatal]
  - Delirium [Unknown]
  - Arrhythmia [Unknown]
  - Tremor [Unknown]
  - Cardiac arrest [Unknown]
  - Hyperreflexia [Unknown]
  - Clonus [Unknown]
